FAERS Safety Report 17454711 (Version 1)
Quarter: 2020Q1

REPORT INFORMATION
  Report Type: Other
  Country: GB (occurrence: GB)
  Receive Date: 20200225
  Receipt Date: 20200225
  Transmission Date: 20200409
  Serious: Yes (Other)
  Sender: FDA-Public Use
  Company Number: GB-LUPIN PHARMACEUTICALS INC.-2020-00861

PATIENT
  Age: 52 Year
  Sex: Male
  Weight: 85 kg

DRUGS (3)
  1. SERTRALINE [Suspect]
     Active Substance: SERTRALINE HYDROCHLORIDE
     Indication: ANXIETY
     Dosage: 50 MILLIGRAM
     Route: 048
     Dates: start: 20190526
  2. SERTRALINE [Suspect]
     Active Substance: SERTRALINE HYDROCHLORIDE
     Dosage: 150 MILLIGRAM
     Route: 048
     Dates: start: 20190621, end: 20190624
  3. SERTRALINE [Suspect]
     Active Substance: SERTRALINE HYDROCHLORIDE
     Dosage: 100 MILLIGRAM
     Route: 048
     Dates: start: 20190620

REACTIONS (10)
  - Suicidal ideation [Recovered/Resolved]
  - Intentional self-injury [Recovering/Resolving]
  - Eye movement disorder [Recovering/Resolving]
  - Restlessness [Recovering/Resolving]
  - Muscle twitching [Recovering/Resolving]
  - Nausea [Recovered/Resolved]
  - Vision blurred [Recovered/Resolved]
  - Facial spasm [Recovered/Resolved]
  - Hyperhidrosis [Recovered/Resolved]
  - Agitation [Recovered/Resolved]

NARRATIVE: CASE EVENT DATE: 20190621
